FAERS Safety Report 6590421-3 (Version None)
Quarter: 2010Q1

REPORT INFORMATION
  Report Type: 
  Country: None (occurrence: None)
  Receive Date: 20100219
  Receipt Date: 20100212
  Transmission Date: 20100710
  Serious: Yes (Hospitalization)
  Sender: FDA-Public Use
  Company Number: IT-ROCHE-682743

PATIENT
  Sex: Female

DRUGS (4)
  1. AVASTIN [Suspect]
     Indication: RECTAL CANCER STAGE IV
     Dosage: DOSE 5 MG/KG. FREQUENCY : CYCLE.
     Route: 042
     Dates: start: 20090518, end: 20091214
  2. FLUOROURACIL [Concomitant]
     Dosage: DRUG REPORTED AS FLUOROURACIL/ UNKNOWN TRADE NAME. DOSE 400 MG/M2, FREQUENCY : CYCLE
     Route: 042
  3. FLUOROURACIL [Concomitant]
     Dosage: DRUG REPORTED AS FLUOROURACIL/ UNKNOWN TRADE NAME. DOSE : 2000 MG/M2, FREQUENCY : CYCLE
     Route: 042
  4. FOLINIC ACID [Concomitant]
     Dosage: DRUG REPORTED AS FOLINIC ACID/UNKNOWN TRADE NAME DOSE : 100 MG/M2, FREQUENCY : CYCLE

REACTIONS (1)
  - HYDROCEPHALUS [None]
